FAERS Safety Report 9045190 (Version 1)
Quarter: 2013Q1

REPORT INFORMATION
  Report Type: Report from Study
  Country: US (occurrence: US)
  Receive Date: 20130130
  Receipt Date: 20130130
  Transmission Date: 20140127
  Serious: No
  Sender: FDA-Public Use
  Company Number: US-ABBOTT-12P-163-0971363-00

PATIENT
  Age: 48 Year
  Sex: Female

DRUGS (22)
  1. HUMIRA 40 MG/0.8 ML PEN [Suspect]
     Indication: CROHN^S DISEASE
     Dates: start: 20120806, end: 20120806
  2. HUMIRA 40 MG/0.8 ML PEN [Suspect]
     Dates: start: 20120820
  3. CYMBALTA [Concomitant]
     Indication: BIPOLAR DISORDER
  4. GABAPENTIN [Concomitant]
     Indication: PAIN
     Dosage: 2 TABS TWICE DAILY
  5. GABAPENTIN [Concomitant]
     Indication: PAIN
     Dosage: ONE AT BEDTIME
  6. BENADRYL [Concomitant]
     Indication: PRURITUS
  7. DEPAKOTE ER [Concomitant]
     Indication: CONVULSION
     Dosage: 2 TABS TWICE DAILY
  8. SEROQUEL [Concomitant]
     Indication: DEPRESSION
  9. SEROQUEL [Concomitant]
     Indication: DEPRESSION
     Dosage: 1-2 AT BEDTIME
  10. BACLOFEN [Concomitant]
     Indication: MUSCLE SPASMS
     Dosage: 3 DAILY AS NEEDED
  11. CLONAZEPAM [Concomitant]
     Indication: ANXIETY
     Dosage: 2 DAILY AS NEEDED
  12. OXYCONTIN [Concomitant]
     Indication: PAIN
  13. PERCOCET [Concomitant]
     Indication: PAIN
     Dosage: 2 DAILY AS NEEDED
  14. VITAMINS [Concomitant]
     Indication: VITAMIN SUPPLEMENTATION
  15. ALKA SELTZER [Concomitant]
     Indication: DYSPEPSIA
  16. SENNA [Concomitant]
     Indication: CONSTIPATION
  17. LISINOPRIL [Concomitant]
     Indication: HYPERTENSION
  18. MIRALAX [Concomitant]
     Indication: CONSTIPATION
  19. FISH OIL [Concomitant]
     Indication: MINERAL SUPPLEMENTATION
  20. VITAMIN C [Concomitant]
     Indication: VITAMIN SUPPLEMENTATION
  21. VITAMIN D [Concomitant]
     Indication: VITAMIN SUPPLEMENTATION
  22. ZINC [Concomitant]
     Indication: VITAMIN SUPPLEMENTATION

REACTIONS (4)
  - Injection site reaction [Not Recovered/Not Resolved]
  - Injection site pruritus [Not Recovered/Not Resolved]
  - Injection site erythema [Not Recovered/Not Resolved]
  - Injection site papule [Not Recovered/Not Resolved]
